FAERS Safety Report 24857184 (Version 1)
Quarter: 2025Q1

REPORT INFORMATION
  Report Type: Spontaneous
  Country: US (occurrence: None)
  Receive Date: 20250117
  Receipt Date: 20250117
  Transmission Date: 20250408
  Serious: Yes (Hospitalization)
  Sender: FDA-CTU
  Company Number: None

PATIENT
  Age: 60 Year
  Sex: Male
  Weight: 97.2 kg

DRUGS (8)
  1. WEGOVY [Suspect]
     Active Substance: SEMAGLUTIDE
     Indication: Weight decreased
     Dosage: 4 INJECTION S WEEKLY SUBCUTANEOUS?
     Route: 058
     Dates: start: 20240719, end: 20241227
  2. ALLOPURINOL [Concomitant]
     Active Substance: ALLOPURINOL
  3. SIMVASTATIN [Concomitant]
     Active Substance: SIMVASTATIN
  4. FENOFIBRATE [Concomitant]
     Active Substance: FENOFIBRATE
  5. ASPIRIN [Concomitant]
     Active Substance: ASPIRIN
  6. No iron Multi vitamin [Concomitant]
  7. VITAMIN B COMPLEX [Concomitant]
     Active Substance: CYANOCOBALAMIN\DEXPANTHENOL\NIACINAMIDE\PYRIDOXINE HYDROCHLORIDE\RIBOFLAVIN 5^-PHOSPHATE SODIUM\THIA
  8. D complex [Concomitant]

REACTIONS (8)
  - Pseudostroke [None]
  - Paralysis [None]
  - Nausea [None]
  - Headache [None]
  - Aspiration [None]
  - Asthenia [None]
  - Dizziness [None]
  - Ophthalmoplegia [None]

NARRATIVE: CASE EVENT DATE: 20241221
